FAERS Safety Report 9265110 (Version 1)
Quarter: 2013Q2

REPORT INFORMATION
  Report Type: Spontaneous
  Country: US (occurrence: US)
  Receive Date: 20130501
  Receipt Date: 20130501
  Transmission Date: 20140414
  Serious: No
  Sender: FDA-Public Use
  Company Number: US-PFIZER INC-2013130353

PATIENT
  Age: 76 Year
  Sex: Female
  Weight: 73 kg

DRUGS (7)
  1. CALAN SR [Suspect]
     Indication: BLOOD PRESSURE ABNORMAL
     Dosage: 240 MG, 1X/DAY
     Route: 048
     Dates: start: 2013, end: 2013
  2. VYTORIN [Concomitant]
     Indication: BLOOD CHOLESTEROL INCREASED
     Dosage: ^40MG^, 1X/DAY
  3. LEVOXYL [Concomitant]
     Indication: THYROID DISORDER
     Dosage: UNK
  4. LISINOPRIL [Concomitant]
     Indication: BLOOD PRESSURE ABNORMAL
     Dosage: UNK
  5. VERAPAMIL HYDROCHLORIDE [Concomitant]
     Indication: BLOOD PRESSURE ABNORMAL
     Dosage: UNK
     Route: 048
  6. OMEPRAZOLE [Concomitant]
     Dosage: UNK
  7. PREMARIN [Concomitant]
     Dosage: UNK

REACTIONS (2)
  - Vomiting [Recovered/Resolved]
  - Dysphagia [Unknown]
